FAERS Safety Report 8780468 (Version 1)
Quarter: 2012Q4

REPORT INFORMATION
  Report Type: Spontaneous
  Country: US (occurrence: None)
  Receive Date: 20120906
  Receipt Date: 20120906
  Transmission Date: 20130627
  Serious: Yes (Hospitalization)
  Sender: FDA-Public Use
  Company Number: None

PATIENT
  Age: 70 Year
  Sex: Male
  Weight: 81.8 kg

DRUGS (2)
  1. LORAZEPAM [Suspect]
     Route: 048
     Dates: start: 201105
  2. CLONAZEPAM [Suspect]
     Route: 048

REACTIONS (3)
  - Fatigue [None]
  - Fall [None]
  - Bedridden [None]
